FAERS Safety Report 24366969 (Version 1)
Quarter: 2024Q3

REPORT INFORMATION
  Report Type: Spontaneous
  Country: US (occurrence: None)
  Receive Date: 20240926
  Receipt Date: 20240926
  Transmission Date: 20241016
  Serious: Yes (Hospitalization)
  Sender: Public
  Company Number: None

PATIENT
  Sex: Male

DRUGS (3)
  1. SIROLIMUS [Suspect]
     Active Substance: SIROLIMUS
     Indication: Heart transplant
     Dosage: 0.15MG ONCE DAILY BY MOUTH
     Route: 048
     Dates: start: 202107
  2. TACROLIMUS [Suspect]
     Active Substance: TACROLIMUS
     Indication: Heart transplant
     Dosage: 0.10MG 2 TIMES A DAY BY MOUTH
     Route: 048
     Dates: start: 202106
  3. CAPECITABINE [Concomitant]

REACTIONS (1)
  - Pulmonary embolism [None]
